FAERS Safety Report 9954898 (Version 2)
Quarter: 2014Q1

REPORT INFORMATION
  Report Type: Report from Study
  Country: US (occurrence: US)
  Receive Date: 20140304
  Receipt Date: 20140304
  Transmission Date: 20141002
  Serious: No
  Sender: FDA-Public Use
  Company Number: US-ABBVIE-13P-163-1076904-00

PATIENT
  Age: 37 Year
  Sex: Male

DRUGS (8)
  1. HUMIRA [Suspect]
     Indication: CROHN^S DISEASE
     Dates: start: 20130213, end: 20130330
  2. HUMIRA [Suspect]
  3. LORTAB [Concomitant]
     Indication: PAIN
     Dosage: 20MG EVERY 4 HRS AS NEEDED
  4. SOMA [Concomitant]
     Indication: MUSCLE RELAXANT THERAPY
     Dosage: AS REQUIRED
  5. XANAX [Concomitant]
     Indication: ANXIETY
     Dosage: AT BEDTIME
  6. XANAX [Concomitant]
     Indication: INSOMNIA
  7. PREDNISONE [Concomitant]
     Indication: PRODUCT USED FOR UNKNOWN INDICATION
     Dosage: 5 MG ALTERNATING WITH 2.5 MG EVERY OTHER DAY
  8. PERCOCET [Concomitant]
     Indication: PAIN

REACTIONS (4)
  - Pharyngitis streptococcal [Recovered/Resolved]
  - Nausea [Not Recovered/Not Resolved]
  - Diarrhoea [Not Recovered/Not Resolved]
  - Abdominal pain upper [Not Recovered/Not Resolved]
